FAERS Safety Report 10263318 (Version 2)
Quarter: 2014Q2

REPORT INFORMATION
  Report Type: Report from Study
  Country: US (occurrence: US)
  Receive Date: 20140626
  Receipt Date: 20140626
  Transmission Date: 20141212
  Serious: Yes (Other)
  Sender: FDA-Public Use
  Company Number: US-MYLANLABS-2013S1004707

PATIENT
  Age: 18 Year
  Sex: Female
  Weight: 62.14 kg

DRUGS (6)
  1. CLOZAPINE TABLETS [Suspect]
     Indication: PSYCHOTIC DISORDER
  2. CLOZAPINE TABLETS [Suspect]
     Indication: OBSESSIVE-COMPULSIVE DISORDER
  3. CLOZAPINE TABLETS [Suspect]
     Indication: PSYCHOTIC DISORDER
     Route: 048
     Dates: end: 20130730
  4. CLOZAPINE TABLETS [Suspect]
     Indication: OBSESSIVE-COMPULSIVE DISORDER
     Route: 048
     Dates: end: 20130730
  5. WELLBUTRIN [Concomitant]
     Dosage: XL
  6. BUSPAR [Concomitant]

REACTIONS (2)
  - Granulocytopenia [Recovered/Resolved]
  - Leukopenia [Recovered/Resolved]
